FAERS Safety Report 13105734 (Version 1)
Quarter: 2017Q1

REPORT INFORMATION
  Report Type: Report from Study
  Country: BR (occurrence: BR)
  Receive Date: 20170111
  Receipt Date: 20170111
  Transmission Date: 20170428
  Serious: Yes (Other)
  Sender: FDA-Public Use
  Company Number: PHHY2017BR003616

PATIENT
  Age: 99 Year
  Sex: Female
  Weight: 48 kg

DRUGS (2)
  1. EXELON PATCH [Suspect]
     Active Substance: RIVASTIGMINE
     Indication: DEMENTIA ALZHEIMER^S TYPE
     Dosage: 4.6 MG (PATCH 5 (CM2), QD
     Route: 062
  2. LASIX [Concomitant]
     Active Substance: FUROSEMIDE
     Indication: DIURETIC THERAPY
     Route: 065

REACTIONS (8)
  - Dehydration [Unknown]
  - Weight decreased [Unknown]
  - Hypoacusis [Unknown]
  - Pulmonary oedema [Recovered/Resolved]
  - Peripheral swelling [Unknown]
  - Memory impairment [Unknown]
  - Dementia Alzheimer^s type [Unknown]
  - Speech disorder [Unknown]

NARRATIVE: CASE EVENT DATE: 201610
